FAERS Safety Report 7573624-0 (Version None)
Quarter: 2011Q2

REPORT INFORMATION
  Report Type: 
  Country: None (occurrence: None)
  Receive Date: 20110621
  Receipt Date: 20110602
  Transmission Date: 20111010
  Serious: Yes (Life-Threatening, Hospitalization)
  Sender: FDA-Public Use
  Company Number: 20110443

PATIENT
  Age: 11 Year
  Sex: Male

DRUGS (7)
  1. PANCURONIUM BROMIDE [Suspect]
  2. UNSPECIFIED CHOLINERGIC RECEPTOR AGONIST [Suspect]
  3. ONDANSETRON [Suspect]
     Indication: VOMITING
  4. THIOPENTAL SODIUM [Suspect]
     Indication: VOMITING
  5. UNSPECIFIED ACTEYL CHOLINESTERASE INHIBITOR [Suspect]
  6. PROPOFOL [Suspect]
     Indication: VOMITING
  7. ISOFLURANE [Suspect]
     Indication: VOMITING
     Dosage: NASAL
     Route: 045

REACTIONS (1)
  - TORSADE DE POINTES [None]
